FAERS Safety Report 4439121-6 (Version None)
Quarter: 2004Q3

REPORT INFORMATION
  Report Type: 
  Country: None (occurrence: None)
  Receive Date: 20040831
  Receipt Date: 20040824
  Transmission Date: 20050211
  Serious: Yes (Hospitalization)
  Sender: FDA-Public Use
  Company Number: FRWYE999424AUG04

PATIENT
  Age: 75 Year
  Sex: Female

DRUGS (3)
  1. EFFEXOR [Suspect]
     Dosage: 37.5 MG 2X PER 1 DAY  ORAL
     Route: 048
     Dates: start: 20040814, end: 20040815
  2. URBANYL (CLOBAZAM, , 0) [Suspect]
     Dosage: 1 TABLET 3X PER 1 DAY  ORAL
     Route: 048
  3. IMOVANE (ZOPICLONE) [Concomitant]

REACTIONS (3)
  - DRUG INTERACTION [None]
  - DRUG LEVEL INCREASED [None]
  - SOMNOLENCE [None]
